FAERS Safety Report 7909732-1 (Version None)
Quarter: 2011Q4

REPORT INFORMATION
  Report Type: 
  Country: None (occurrence: None)
  Receive Date: 20111111
  Receipt Date: 20111031
  Transmission Date: 20120403
  Serious: Yes (Death, Hospitalization, Other)
  Sender: FDA-Public Use
  Company Number: TW-CELGENEUS-153-50794-11070048

PATIENT
  Sex: Female
  Weight: 43.5 kg

DRUGS (3)
  1. VIDAZA [Suspect]
     Route: 065
     Dates: start: 20110704, end: 20110705
  2. VIDAZA [Suspect]
     Route: 065
     Dates: start: 20110621, end: 20110701
  3. VIDAZA [Suspect]
     Indication: MYELODYSPLASTIC SYNDROME
     Route: 065
     Dates: start: 20110425, end: 20110917

REACTIONS (5)
  - STAPHYLOCOCCAL SKIN INFECTION [None]
  - MALAISE [None]
  - ENTEROCOLITIS INFECTIOUS [None]
  - SKIN NECROSIS [None]
  - PNEUMONIA [None]
